FAERS Safety Report 4493890-8 (Version None)
Quarter: 2004Q4

REPORT INFORMATION
  Report Type: 
  Country: None (occurrence: None)
  Receive Date: 20041105
  Receipt Date: 20041027
  Transmission Date: 20050328
  Serious: Yes (Hospitalization, Other)
  Sender: FDA-Public Use
  Company Number: US-JNJFOC-20041008399

PATIENT
  Age: 62 Year
  Sex: Female
  Weight: 90 kg

DRUGS (2)
  1. REMICADE [Suspect]
     Indication: RHEUMATOID ARTHRITIS
     Route: 042
  2. METHOTREXATE [Concomitant]

REACTIONS (4)
  - HEPATIC ENZYME INCREASED [None]
  - HISTOPLASMOSIS [None]
  - PLATELET COUNT DECREASED [None]
  - SEPSIS [None]
